FAERS Safety Report 10604648 (Version 1)
Quarter: 2014Q4

REPORT INFORMATION
  Report Type: Spontaneous
  Country: US (occurrence: US)
  Receive Date: 20141124
  Receipt Date: 20141124
  Transmission Date: 20150529
  Serious: No
  Sender: FDA-Public Use
  Company Number: US-SA-2014SA065718

PATIENT

DRUGS (2)
  1. RENVELA [Suspect]
     Active Substance: SEVELAMER CARBONATE
     Indication: PRODUCT USED FOR UNKNOWN INDICATION
     Dosage: RENVELA ORAL TABLET 800 MG; 4 TABLETS WITH MEALS 3-4 TIMES A DAY AND 1-2 WITH SNACKS
     Route: 048
  2. RENVELA [Suspect]
     Active Substance: SEVELAMER CARBONATE
     Indication: PRODUCT USED FOR UNKNOWN INDICATION
     Dosage: 4 WITH MEALS.
     Route: 065

REACTIONS (3)
  - Overdose [Unknown]
  - Nausea [Unknown]
  - Constipation [Not Recovered/Not Resolved]
